FAERS Safety Report 23111849 (Version 2)
Quarter: 2023Q4

REPORT INFORMATION
  Report Type: Spontaneous
  Country: CN (occurrence: CN)
  Receive Date: 20231026
  Receipt Date: 20231102
  Transmission Date: 20240110
  Serious: Yes (Hospitalization)
  Sender: FDA-Public Use
  Company Number: CN-002147023-NVSC2023CN228095

PATIENT
  Age: 37 Year
  Sex: Male

DRUGS (1)
  1. GILENYA [Suspect]
     Active Substance: FINGOLIMOD HYDROCHLORIDE
     Indication: Multiple sclerosis
     Dosage: UNK, (USED A TOTAL OF 5 BOXES)
     Route: 048
     Dates: start: 202304, end: 202310

REACTIONS (12)
  - Hepatic function abnormal [Recovering/Resolving]
  - Pulmonary mass [Unknown]
  - Muscular weakness [Recovering/Resolving]
  - Chromaturia [Unknown]
  - Blood pressure increased [Unknown]
  - Cough [Unknown]
  - Asthenia [Unknown]
  - Tinnitus [Unknown]
  - Lung disorder [Unknown]
  - Intervertebral disc protrusion [Unknown]
  - Adjustment disorder with mixed anxiety and depressed mood [Unknown]
  - Hypoacusis [Unknown]

NARRATIVE: CASE EVENT DATE: 20230901
